FAERS Safety Report 21026694 (Version 4)
Quarter: 2022Q3

REPORT INFORMATION
  Report Type: Spontaneous
  Country: JP (occurrence: JP)
  Receive Date: 20220630
  Receipt Date: 20220930
  Transmission Date: 20221026
  Serious: Yes (Death, Other)
  Sender: FDA-Public Use
  Company Number: JP-ASTELLAS-2022JP008360

PATIENT
  Age: 89 Year
  Sex: Male
  Weight: 58 kg

DRUGS (3)
  1. PADCEV [Suspect]
     Active Substance: ENFORTUMAB VEDOTIN-EJFV
     Indication: Transitional cell carcinoma
     Dosage: 1 MG/KG, ONCE WEEKLY 3 TIMES 1 OFF, ADMINISTRATION FOR DAY1, CYCLE4 WAS POSTPONED BY A WEEK
     Route: 041
     Dates: start: 20220302, end: 20220608
  2. PADCEV [Suspect]
     Active Substance: ENFORTUMAB VEDOTIN-EJFV
     Dosage: 1 MG/KG, ONCE WEEKLY 3 TIMES 1 OFF, DAY1 OF CYCLE4
     Route: 041
     Dates: start: 20220615, end: 20220720
  3. FILGRASTIM [Concomitant]
     Active Substance: FILGRASTIM
     Indication: Neutrophil count decreased
     Dosage: UNK UNK, UNKNOWN FREQ.
     Route: 065

REACTIONS (3)
  - Neutrophil count decreased [Recovered/Resolved]
  - Nausea [Recovered/Resolved]
  - Malignant neoplasm progression [Fatal]

NARRATIVE: CASE EVENT DATE: 20220608
